FAERS Safety Report 7447021-2 (Version None)
Quarter: 2011Q2

REPORT INFORMATION
  Report Type: 
  Country: None (occurrence: None)
  Receive Date: 20110429
  Receipt Date: 20110418
  Transmission Date: 20111010
  Serious: Yes (Other)
  Sender: FDA-Public Use
  Company Number: US-JNJFOC-20110411136

PATIENT
  Age: 65 Year
  Sex: Male
  Weight: 90.72 kg

DRUGS (5)
  1. MULTI-VITAMINS [Concomitant]
     Indication: MEDICAL DIET
     Route: 048
  2. EXTRA STRENGTH TYLENOL [Suspect]
     Route: 048
  3. EXTRA STRENGTH TYLENOL [Suspect]
     Indication: HEADACHE
     Route: 048
  4. BELLADONNA [Concomitant]
     Indication: GASTROOESOPHAGEAL REFLUX DISEASE
     Route: 048
  5. ASPIRIN [Concomitant]
     Indication: CARDIOVASCULAR EVENT PROPHYLAXIS
     Dosage: EVERY 3-4 WEEKS
     Route: 048

REACTIONS (6)
  - INSOMNIA [None]
  - FALL [None]
  - WEIGHT DECREASED [None]
  - FEELING ABNORMAL [None]
  - PRODUCT QUALITY ISSUE [None]
  - DIZZINESS [None]
